FAERS Safety Report 20254108 (Version 1)
Quarter: 2021Q4

REPORT INFORMATION
  Report Type: Spontaneous
  Country: AU (occurrence: AU)
  Receive Date: 20211230
  Receipt Date: 20211230
  Transmission Date: 20220303
  Serious: Yes (Other)
  Sender: FDA-Public Use
  Company Number: AU-ALKEM LABORATORIES LIMITED-AU-ALKEM-2021-08128

PATIENT
  Age: 54 Year
  Sex: Female

DRUGS (4)
  1. OLANZAPINE [Suspect]
     Active Substance: OLANZAPINE
     Indication: Product used for unknown indication
     Dosage: UNK
     Route: 065
  2. LITHIUM [Suspect]
     Active Substance: LITHIUM
     Indication: Product used for unknown indication
     Dosage: UNK
     Route: 065
  3. CLOZAPINE [Suspect]
     Active Substance: CLOZAPINE
     Indication: Product used for unknown indication
     Dosage: UNK
     Route: 065
  4. LORAZEPAM [Suspect]
     Active Substance: LORAZEPAM
     Indication: Product used for unknown indication
     Dosage: UNK
     Route: 065

REACTIONS (14)
  - Myocardial infarction [Unknown]
  - Schizophrenia [Unknown]
  - Aspartate aminotransferase increased [Unknown]
  - Blood bicarbonate decreased [Unknown]
  - Blood creatine phosphokinase increased [Unknown]
  - Blood prolactin increased [Unknown]
  - Cardiac disorder [Unknown]
  - Cardiac murmur [Unknown]
  - Cough [Unknown]
  - C-reactive protein increased [Unknown]
  - Mean cell haemoglobin increased [Unknown]
  - Neutrophil count increased [Unknown]
  - Troponin increased [Unknown]
  - White blood cell count increased [Unknown]
